FAERS Safety Report 21086646 (Version 13)
Quarter: 2025Q2

REPORT INFORMATION
  Report Type: Spontaneous
  Country: CA (occurrence: CA)
  Receive Date: 20220715
  Receipt Date: 20250403
  Transmission Date: 20250716
  Serious: Yes (Hospitalization, Other)
  Sender: PFIZER
  Company Number: CA-PFIZER INC-202200949870

PATIENT
  Age: 40 Year
  Sex: Male

DRUGS (6)
  1. ABRILADA [Suspect]
     Active Substance: ADALIMUMAB-AFZB
     Indication: Colitis ulcerative
     Route: 058
     Dates: start: 20220615, end: 202212
  2. ABRILADA [Suspect]
     Active Substance: ADALIMUMAB-AFZB
     Dosage: 40 MG, WEEKLY
     Route: 042
  3. ABRILADA [Suspect]
     Active Substance: ADALIMUMAB-AFZB
     Route: 042
     Dates: start: 20221226
  4. ABRILADA [Suspect]
     Active Substance: ADALIMUMAB-AFZB
     Route: 058
     Dates: start: 20230102
  5. ABRILADA [Suspect]
     Active Substance: ADALIMUMAB-AFZB
     Route: 042
     Dates: start: 20230102
  6. ABRILADA [Suspect]
     Active Substance: ADALIMUMAB-AFZB
     Dosage: 40 MG, WEEKLY
     Route: 058
     Dates: start: 20250320

REACTIONS (12)
  - Haemoglobin decreased [Unknown]
  - Skin laceration [Not Recovered/Not Resolved]
  - Therapeutic response shortened [Unknown]
  - Accident [Not Recovered/Not Resolved]
  - Condition aggravated [Recovering/Resolving]
  - Haemorrhoidal haemorrhage [Not Recovered/Not Resolved]
  - Serum ferritin decreased [Not Recovered/Not Resolved]
  - Malaise [Unknown]
  - Off label use [Unknown]
  - Off label use [Unknown]
  - Off label use [Unknown]
  - Inappropriate schedule of product administration [Unknown]

NARRATIVE: CASE EVENT DATE: 20220101
